FAERS Safety Report 9434259 (Version 2)
Quarter: 2013Q3

REPORT INFORMATION
  Report Type: Spontaneous
  Country: BR (occurrence: BR)
  Receive Date: 20130801
  Receipt Date: 20130826
  Transmission Date: 20140515
  Serious: Yes (Life-Threatening, Hospitalization, Other)
  Sender: FDA-Public Use
  Company Number: PHHY2013BR080839

PATIENT
  Age: 88 Year
  Sex: Male

DRUGS (13)
  1. EXELON [Suspect]
     Indication: DEMENTIA ALZHEIMER^S TYPE
     Dosage: 3 MG, QD (2 TABLETS OF 1.5 MG)
  2. EXELON [Suspect]
     Dosage: 6 MG QD, (2 TABLETS OF 3 MG)
  3. EXELON [Suspect]
     Dosage: 9 MG QD, (2 TABLETS OF 4.5 MG)
  4. EXELON [Suspect]
     Dosage: 12 MG QD, (2 TABLETS OF 6 MG)
  5. GALVUS MET [Suspect]
     Indication: DIABETES MELLITUS
     Dosage: 2 DF, DAILY
     Route: 048
     Dates: start: 2012
  6. ALOIS [Suspect]
     Dosage: UNK UKN, UNK
  7. METFORMIN [Concomitant]
     Indication: TYPE 2 DIABETES MELLITUS
     Dosage: UNK UKN, UNK
  8. INSULIN [Concomitant]
     Indication: TYPE 2 DIABETES MELLITUS
     Dosage: UNK UKN, UNK
  9. NOVOMIX [Concomitant]
     Indication: DIABETES MELLITUS
     Dosage: TWO APPLICATIONS A DAY
     Route: 058
  10. DIOVAN [Concomitant]
     Indication: HYPERTENSION
     Dosage: 1 DF, QD
     Route: 048
  11. AMLODIPINO//AMLODIPINE [Concomitant]
     Indication: HYPERTENSION
     Dosage: 1 DF, QD
  12. NATRILIX [Concomitant]
     Indication: DIURETIC THERAPY
     Dosage: 1 DF, QD
  13. SEMOLGIN [Concomitant]
     Indication: BLOOD DISORDER
     Dosage: 1 DF, QD
     Route: 048

REACTIONS (15)
  - Apparent death [Recovered/Resolved]
  - Respiratory disorder [Recovered/Resolved]
  - Bronchitis [Recovered/Resolved]
  - Dyspnoea [Recovered/Resolved]
  - Feeling abnormal [Recovered/Resolved]
  - Depression [Recovered/Resolved]
  - Hypersomnia [Recovered/Resolved]
  - Hallucination [Recovered/Resolved]
  - Eating disorder [Recovered/Resolved]
  - Nervousness [Recovered/Resolved]
  - Logorrhoea [Recovered/Resolved]
  - Crying [Recovered/Resolved]
  - Agitation [Recovered/Resolved]
  - Dizziness [Recovered/Resolved]
  - Nausea [Recovered/Resolved]
